FAERS Safety Report 19255037 (Version 1)
Quarter: 2021Q2

REPORT INFORMATION
  Report Type: Report from Study
  Country: CA (occurrence: CA)
  Receive Date: 20210513
  Receipt Date: 20210513
  Transmission Date: 20210717
  Serious: Yes (Hospitalization, Other)
  Sender: FDA-Public Use
  Company Number: CA-ASTRAZENECA-2021A027201

PATIENT
  Age: 18427 Day
  Sex: Female

DRUGS (22)
  1. SPIRIVA [Concomitant]
     Active Substance: TIOTROPIUM BROMIDE MONOHYDRATE
  2. APO?NAPROXEN [Concomitant]
     Active Substance: NAPROXEN
  3. PREDNISONE. [Concomitant]
     Active Substance: PREDNISONE
  4. APO?AMOXI CLAV [Concomitant]
     Active Substance: AMOXICILLIN\CLAVULANATE POTASSIUM
  5. SYMBICORT [Concomitant]
     Active Substance: BUDESONIDE\FORMOTEROL FUMARATE DIHYDRATE
  6. PANTOPRAZOLE [Concomitant]
     Active Substance: PANTOPRAZOLE
  7. SYMBICORT [Concomitant]
     Active Substance: BUDESONIDE\FORMOTEROL FUMARATE DIHYDRATE
  8. LACTULOSE. [Concomitant]
     Active Substance: LACTULOSE
  9. DOMPERIDONE [Concomitant]
     Active Substance: DOMPERIDONE
  10. FASENRA [Suspect]
     Active Substance: BENRALIZUMAB
     Indication: ASTHMA
     Dosage: 30.0MG UNKNOWN
     Route: 058
     Dates: start: 20200113, end: 20210401
  11. DEXILANT [Concomitant]
     Active Substance: DEXLANSOPRAZOLE
  12. ZENHALE [Concomitant]
     Active Substance: FORMOTEROL FUMARATE\MOMETASONE FUROATE
  13. PANTOPRAZOLE [Concomitant]
     Active Substance: PANTOPRAZOLE
  14. LACTULOSE. [Concomitant]
     Active Substance: LACTULOSE
  15. VENTOLIN [Concomitant]
     Active Substance: ALBUTEROL SULFATE
  16. RANITIDINE. [Concomitant]
     Active Substance: RANITIDINE
  17. BREO ELLIPTA 2PUFFS [Concomitant]
  18. CETIRIZINE [Concomitant]
     Active Substance: CETIRIZINE HYDROCHLORIDE
  19. MOMETASONE [Concomitant]
     Active Substance: MOMETASONE
  20. PULMICORT TURBUHALER [Concomitant]
     Active Substance: BUDESONIDE
  21. PICO?SALAX [Concomitant]
     Active Substance: ANHYDROUS CITRIC ACID\MAGNESIUM OXIDE\SODIUM PICOSULFATE
  22. DOMPERIDONE [Concomitant]
     Active Substance: DOMPERIDONE

REACTIONS (2)
  - Therapeutic response decreased [Not Recovered/Not Resolved]
  - Asthma [Not Recovered/Not Resolved]

NARRATIVE: CASE EVENT DATE: 20210106
